FAERS Safety Report 4954386-X (Version None)
Quarter: 2006Q1

REPORT INFORMATION
  Report Type: 
  Country: None (occurrence: None)
  Receive Date: 20060322
  Receipt Date: 20060316
  Transmission Date: 20060701
  Serious: Yes (Life-Threatening, Other)
  Sender: FDA-Public Use
  Company Number: HQWYE360716MAR06

PATIENT
  Age: 83 Year
  Sex: Female

DRUGS (2)
  1. TRANGOREX (AMIODARONE, TABLET) [Suspect]
     Indication: ESSENTIAL HYPERTENSION
     Dosage: 200 MG 1X PER 1 DAY ORAL
     Route: 048
     Dates: end: 20050715
  2. CARTEOLOL HYDROCHLORIDE [Suspect]
     Dosage: 8 DROP 3X PER 1 DAY OPHTHALMIC
     Route: 047
     Dates: end: 20050718

REACTIONS (3)
  - BRADYCARDIA [None]
  - HYPERKALAEMIA [None]
  - NODAL ARRHYTHMIA [None]
